FAERS Safety Report 9385135 (Version 7)
Quarter: 2013Q4

REPORT INFORMATION
  Report Type: Report from Study
  Country: FR (occurrence: FR)
  Receive Date: 20130705
  Receipt Date: 20131031
  Transmission Date: 20140711
  Serious: Yes (Hospitalization)
  Sender: FDA-Public Use
  Company Number: FR-BAYER-2013-081839

PATIENT
  Age: 66 Year
  Sex: Female
  Weight: 44 kg

DRUGS (30)
  1. SORAFENIB (RAF KINASE INHIBITOR) [Suspect]
     Indication: THYROID CANCER
     Dosage: UNK
     Dates: end: 201306
  2. SORAFENIB (RAF KINASE INHIBITOR) [Suspect]
     Indication: THYROID CANCER
     Dosage: DAILY DOSE 400 MG
     Route: 048
     Dates: start: 201201, end: 201205
  3. SORAFENIB (RAF KINASE INHIBITOR) [Suspect]
     Indication: THYROID CANCER
     Dosage: 400 BID
     Dates: start: 20101103, end: 20101115
  4. SORAFENIB (RAF KINASE INHIBITOR) [Suspect]
     Indication: THYROID CANCER
     Dosage: 200 BID
     Dates: start: 20101116, end: 20101129
  5. SORAFENIB (RAF KINASE INHIBITOR) [Suspect]
     Indication: THYROID CANCER
     Dosage: 400 QD
     Dates: start: 20101130, end: 20101229
  6. SORAFENIB (RAF KINASE INHIBITOR) [Suspect]
     Indication: THYROID CANCER
     Dosage: 200 QD
     Dates: start: 20101130, end: 20101228
  7. SORAFENIB (RAF KINASE INHIBITOR) [Suspect]
     Indication: THYROID CANCER
     Dosage: 400 QD
     Dates: start: 20101230, end: 20110124
  8. SORAFENIB (RAF KINASE INHIBITOR) [Suspect]
     Indication: THYROID CANCER
     Dosage: 200 QD
     Dates: start: 20101229, end: 20110123
  9. SORAFENIB (RAF KINASE INHIBITOR) [Suspect]
     Indication: THYROID CANCER
     Dosage: 200 QD
     Dates: start: 20110125, end: 20110221
  10. SORAFENIB (RAF KINASE INHIBITOR) [Suspect]
     Indication: THYROID CANCER
     Dosage: 400 QD
     Dates: start: 20110124, end: 20110220
  11. SORAFENIB (RAF KINASE INHIBITOR) [Suspect]
     Indication: THYROID CANCER
     Dosage: 200 QD
     Dates: start: 20110221, end: 20110320
  12. SORAFENIB (RAF KINASE INHIBITOR) [Suspect]
     Indication: THYROID CANCER
     Dosage: 400 QD
     Dates: start: 20110222, end: 20110321
  13. SORAFENIB (RAF KINASE INHIBITOR) [Suspect]
     Indication: THYROID CANCER
     Dosage: 200 QD
     Dates: start: 20110321, end: 20110417
  14. SORAFENIB (RAF KINASE INHIBITOR) [Suspect]
     Indication: THYROID CANCER
     Dosage: 400 QD
     Dates: start: 20110322, end: 20110418
  15. SORAFENIB (RAF KINASE INHIBITOR) [Suspect]
     Indication: THYROID CANCER
     Dosage: 400 QD
     Dates: start: 20110419, end: 20110516
  16. SORAFENIB (RAF KINASE INHIBITOR) [Suspect]
     Indication: THYROID CANCER
     Dosage: 200 QD
     Dates: start: 20110418, end: 20110515
  17. SORAFENIB (RAF KINASE INHIBITOR) [Suspect]
     Indication: THYROID CANCER
     Dosage: 400 QD
     Dates: start: 20110517, end: 20110615
  18. SORAFENIB (RAF KINASE INHIBITOR) [Suspect]
     Indication: THYROID CANCER
     Dosage: 200 QD
     Dates: start: 20110516, end: 20110614
  19. SORAFENIB (RAF KINASE INHIBITOR) [Suspect]
     Indication: THYROID CANCER
     Dosage: 200 QD
     Dates: start: 20110615, end: 20110807
  20. SORAFENIB (RAF KINASE INHIBITOR) [Suspect]
     Indication: THYROID CANCER
     Dosage: 400 QD
     Dates: start: 20110616, end: 20110808
  21. SORAFENIB (RAF KINASE INHIBITOR) [Suspect]
     Indication: THYROID CANCER
     Dosage: 200 QD
     Dates: start: 20110808, end: 20111005
  22. SORAFENIB (RAF KINASE INHIBITOR) [Suspect]
     Indication: THYROID CANCER
     Dosage: 400 QD
     Dates: start: 20110809, end: 20111006
  23. SORAFENIB (RAF KINASE INHIBITOR) [Suspect]
     Indication: THYROID CANCER
     Dosage: UNK
     Dates: end: 20120130
  24. SORAFENIB (RAF KINASE INHIBITOR) [Suspect]
     Indication: THYROID CANCER
     Dosage: UNK
  25. PARACETAMOL WITH CODEINE PHOSPHATE [Concomitant]
     Indication: MUSCULOSKELETAL PAIN
     Dosage: 500 MG, PRN
     Dates: start: 20130617
  26. LEVOTHYROX [Concomitant]
     Indication: POST PROCEDURAL HYPOTHYROIDISM
     Dosage: 100 MCG
     Dates: start: 20110221, end: 20120205
  27. LEVOTHYROX [Concomitant]
     Indication: POST PROCEDURAL HYPOTHYROIDISM
     Dosage: 112.5 MCG
     Dates: start: 20120206, end: 20120314
  28. LEVOTHYROX [Concomitant]
     Indication: POST PROCEDURAL HYPOTHYROIDISM
     Dosage: 125 MCG
     Dates: start: 20120315
  29. BROMAZEPAM [Concomitant]
     Dosage: 3 MG
     Dates: start: 201101
  30. CACIT VITAMINE D3 [Concomitant]
     Dosage: 1500 MG
     Dates: start: 20130225

REACTIONS (1)
  - Abscess intestinal [Recovered/Resolved]
